FAERS Safety Report 26008654 (Version 1)
Quarter: 2025Q4

REPORT INFORMATION
  Report Type: Spontaneous
  Country: EU (occurrence: EU)
  Receive Date: 20251106
  Receipt Date: 20251106
  Transmission Date: 20260118
  Serious: Yes (Hospitalization)
  Sender: ELI LILLY AND COMPANY
  Company Number: EU-CHEPLA-2025012208

PATIENT
  Age: 73 Year
  Sex: Male
  Weight: 86.2 kg

DRUGS (17)
  1. RAMUCIRUMAB [Suspect]
     Active Substance: RAMUCIRUMAB
     Indication: Hypoaesthesia
     Dosage: 10 MG/KG, CYCLICAL (ON DAY 1 OF EACH 14-DAY CYCLE)
     Route: 042
     Dates: start: 20231130
  2. RAMUCIRUMAB [Suspect]
     Active Substance: RAMUCIRUMAB
     Indication: Oedema peripheral
     Dosage: UNK, UNKNOWN
     Route: 042
     Dates: start: 20231228
  3. RAMUCIRUMAB [Suspect]
     Active Substance: RAMUCIRUMAB
     Indication: Ecchymosis
     Dosage: UNK, UNKNOWN
     Route: 042
     Dates: end: 20250619
  4. RAMUCIRUMAB [Suspect]
     Active Substance: RAMUCIRUMAB
     Indication: Oedema peripheral
  5. ERLOTINIB [Suspect]
     Active Substance: ERLOTINIB
     Indication: Lung adenocarcinoma
     Dosage: 150 MG, ORALLY (PO), DAILY
     Route: 048
     Dates: start: 20171128, end: 20231116
  6. ERLOTINIB [Suspect]
     Active Substance: ERLOTINIB
     Dosage: 100 MG, DAILY
     Route: 048
  7. ERLOTINIB [Suspect]
     Active Substance: ERLOTINIB
     Dosage: UNK, UNKNOWN
     Route: 048
     Dates: end: 20250713
  8. ERLOTINIB [Suspect]
     Active Substance: ERLOTINIB
     Dosage: UNK, UNKNOWN
     Route: 048
     Dates: end: 20250716
  9. ERLOTINIB [Suspect]
     Active Substance: ERLOTINIB
     Dosage: 100 MG, DAILY
     Route: 048
     Dates: start: 20231116
  10. ERLOTINIB [Suspect]
     Active Substance: ERLOTINIB
     Dosage: 100 MG, DAILY
     Route: 048
     Dates: start: 20231201
  11. AMLODIPINE [Concomitant]
     Active Substance: AMLODIPINE BESYLATE
     Indication: Hypertension
     Dates: start: 20171212
  12. LOSARTAN [Concomitant]
     Active Substance: LOSARTAN
     Indication: Hypertension
     Dates: start: 20151126
  13. SPIRONOLACTONE [Concomitant]
     Active Substance: SPIRONOLACTONE
     Indication: Supportive care
     Dates: start: 20201228
  14. ASPIRIN [Concomitant]
     Active Substance: ASPIRIN
     Indication: Prophylaxis
     Dates: start: 20210916
  15. BETAMETHASONE [Concomitant]
     Active Substance: BETAMETHASONE
     Indication: Erythema
     Dates: start: 20221207
  16. AMOXICILLIN\CLAVULANIC ACID [Concomitant]
     Active Substance: AMOXICILLIN\CLAVULANIC ACID
     Indication: Cough
     Dates: start: 20250703, end: 20250706
  17. TAMSULOSIN HYDROCHLORIDE [Concomitant]
     Active Substance: TAMSULOSIN HYDROCHLORIDE
     Indication: Benign prostatic hyperplasia
     Dates: start: 20240827

REACTIONS (4)
  - Renal impairment [Recovered/Resolved]
  - Diarrhoea [Recovered/Resolved]
  - Bronchitis [Unknown]
  - Off label use [Unknown]

NARRATIVE: CASE EVENT DATE: 20250713
